FAERS Safety Report 8302668-6 (Version None)
Quarter: 2012Q2

REPORT INFORMATION
  Report Type: 
  Country: None (occurrence: None)
  Receive Date: 20120420
  Receipt Date: 20120416
  Transmission Date: 20120825
  Serious: Yes (Disabling)
  Sender: FDA-Public Use
  Company Number: PHHO2012FR006016

PATIENT
  Sex: Male
  Weight: 40.5 kg

DRUGS (6)
  1. ZOLEDRONOC ACID [Suspect]
     Indication: BONE SARCOMA
     Dosage: 4 MG, UNK
     Route: 042
     Dates: start: 20110729, end: 20120203
  2. ADRIAMYCIN PFS [Suspect]
     Indication: BONE SARCOMA
     Dosage: 102 MG, UNK
     Dates: start: 20111129, end: 20120126
  3. IFOSFAMIDE [Suspect]
     Indication: BONE SARCOMA
     Dosage: 4.4 G, UNK
     Dates: start: 20110927, end: 20110930
  4. METHOTREXATE [Suspect]
     Indication: BONE SARCOMA
     Dosage: 17 G, UNK
     Dates: start: 20110726, end: 20120111
  5. CISPLATIN [Suspect]
     Indication: BONE SARCOMA
     Dosage: 163 MG, UNK
     Dates: start: 20111121, end: 20120126
  6. ETOPOSIDE [Suspect]
     Indication: BONE SARCOMA
     Dosage: 110 MG, UNK
     Dates: start: 20110927, end: 20110930

REACTIONS (1)
  - OTOTOXICITY [None]
